FAERS Safety Report 25417397 (Version 1)
Quarter: 2025Q2

REPORT INFORMATION
  Report Type: Spontaneous
  Country: GB (occurrence: GB)
  Receive Date: 20250610
  Receipt Date: 20250610
  Transmission Date: 20250716
  Serious: Yes (Other)
  Sender: MYLAN
  Company Number: None

PATIENT
  Age: 14 Year
  Sex: Male
  Weight: 41 kg

DRUGS (4)
  1. LORATADINE [Suspect]
     Active Substance: LORATADINE
     Indication: Seasonal allergy
     Dates: start: 20250429, end: 20250501
  2. LORATADINE [Suspect]
     Active Substance: LORATADINE
     Route: 065
     Dates: start: 20250429, end: 20250501
  3. LORATADINE [Suspect]
     Active Substance: LORATADINE
     Route: 065
     Dates: start: 20250429, end: 20250501
  4. LORATADINE [Suspect]
     Active Substance: LORATADINE
     Dates: start: 20250429, end: 20250501

REACTIONS (1)
  - Syncope [Unknown]

NARRATIVE: CASE EVENT DATE: 20250501
